FAERS Safety Report 9188358 (Version 1)
Quarter: 2013Q1

REPORT INFORMATION
  Report Type: Spontaneous
  Country: US (occurrence: US)
  Receive Date: 20130325
  Receipt Date: 20130325
  Transmission Date: 20140127
  Serious: No
  Sender: FDA-Public Use
  Company Number: US-009507513-1303USA011560

PATIENT
  Age: 28 Year
  Sex: Male

DRUGS (3)
  1. SAPHRIS [Suspect]
     Indication: SCHIZOAFFECTIVE DISORDER
     Dosage: 10 MG, BID
  2. SAPHRIS [Suspect]
     Dosage: 5 MG, BID
  3. SAPHRIS [Suspect]
     Dosage: 5 MG, BID

REACTIONS (1)
  - Akathisia [Unknown]
